FAERS Safety Report 5404449-X (Version None)
Quarter: 2007Q3

REPORT INFORMATION
  Report Type: 
  Country: None (occurrence: None)
  Receive Date: 20070802
  Receipt Date: 20070725
  Transmission Date: 20080115
  Serious: Yes (Other)
  Sender: FDA-Public Use
  Company Number: CA-PFIZER INC-2007062181

PATIENT
  Age: 74 Year
  Sex: Male

DRUGS (4)
  1. NORVASC [Suspect]
     Indication: BLOOD PRESSURE
     Route: 048
  2. LIPITOR [Suspect]
     Route: 048
  3. ATACAND HCT [Concomitant]
     Route: 048
  4. ASPIRIN [Concomitant]
     Route: 048

REACTIONS (4)
  - FEELING DRUNK [None]
  - HALLUCINATION [None]
  - LIBIDO INCREASED [None]
  - NIGHTMARE [None]
